FAERS Safety Report 19500190 (Version 4)
Quarter: 2021Q3

REPORT INFORMATION
  Report Type: Spontaneous
  Country: CA (occurrence: CA)
  Receive Date: 20210707
  Receipt Date: 20210923
  Transmission Date: 20211014
  Serious: Yes (Hospitalization)
  Sender: FDA-Public Use
  Company Number: CA-CELLTRION INC.-2021CA008775

PATIENT

DRUGS (12)
  1. INFLECTRA [Suspect]
     Active Substance: INFLIXIMAB-DYYB
     Indication: COLITIS ULCERATIVE
     Dosage: WEEK 0 HOSPITAL START/ RESCUE DOSE 300MG 10JUNE WEEK 2 DOSE SCHEDULED 2 WEEKS FROM 10JUN2021
     Route: 041
     Dates: start: 20210608, end: 20210608
  2. INFLECTRA [Suspect]
     Active Substance: INFLIXIMAB-DYYB
     Dosage: 300 MG,(EVERY 8 WEEK)
     Route: 042
     Dates: start: 20210910
  3. INFLECTRA [Suspect]
     Active Substance: INFLIXIMAB-DYYB
     Dosage: TOP UP DOSE/WEEK 2 DOSE SCHEDULED 2 WEEKS FROM 10JUN2021, 6 WEEKS, THEN EVERY 8 WEEKS
     Route: 042
     Dates: start: 20210610, end: 20210610
  4. INFLECTRA [Suspect]
     Active Substance: INFLIXIMAB-DYYB
     Dosage: 300 MG WEEK 6 DOSE
     Route: 042
     Dates: start: 20210723, end: 20210723
  5. HYDROCORTISONE. [Concomitant]
     Active Substance: HYDROCORTISONE
     Indication: PREMEDICATION
     Dosage: 200 MG
     Route: 042
     Dates: start: 20210610, end: 20210610
  6. AZATHIOPRINE. [Concomitant]
     Active Substance: AZATHIOPRINE
     Dosage: 50 MG, START AND STOP DATES UNKNOWN
     Dates: start: 20210623
  7. ACETAMINOPHEN. [Concomitant]
     Active Substance: ACETAMINOPHEN
     Indication: PREMEDICATION
     Dosage: 650 MG
     Route: 048
     Dates: start: 20210623
  8. IMURAN [Concomitant]
     Active Substance: AZATHIOPRINE
     Dosage: DOSAGE NOT AVAILABLE
     Route: 065
  9. INFLECTRA [Suspect]
     Active Substance: INFLIXIMAB-DYYB
     Dosage: 300 MG WEEK 2 DOSE
     Route: 042
     Dates: start: 20210623, end: 20210623
  10. BENADRYL [Concomitant]
     Active Substance: DIPHENHYDRAMINE HYDROCHLORIDE
     Indication: PREMEDICATION
     Dosage: 50 MG, (IV OR PO)
     Dates: start: 20210610, end: 20210610
  11. DIPHENHYDRAMINE. [Concomitant]
     Active Substance: DIPHENHYDRAMINE
     Indication: PREMEDICATION
     Dosage: 50 MG
     Route: 048
     Dates: start: 20210623
  12. TYLENOL [Concomitant]
     Active Substance: ACETAMINOPHEN
     Indication: PREMEDICATION
     Dosage: 650 MG
     Dates: start: 20210610, end: 20210610

REACTIONS (4)
  - Condition aggravated [Not Recovered/Not Resolved]
  - Blood pressure decreased [Not Recovered/Not Resolved]
  - Therapy non-responder [Unknown]
  - Alopecia [Unknown]

NARRATIVE: CASE EVENT DATE: 20210608
